FAERS Safety Report 7093602-8 (Version None)
Quarter: 2010Q4

REPORT INFORMATION
  Report Type: 
  Country: None (occurrence: None)
  Receive Date: 20101110
  Receipt Date: 20091013
  Transmission Date: 20110411
  Serious: No
  Sender: FDA-Public Use
  Company Number: US-KINGPHARMUSA00001-K200901265

PATIENT
  Age: 80 Year
  Sex: Female
  Weight: 49.887 kg

DRUGS (4)
  1. FLECTOR [Suspect]
     Indication: ARTHRALGIA
     Dosage: 1 PATCH, EVERY 12 HOURS
     Route: 061
     Dates: start: 20090930, end: 20091005
  2. INSULIN [Concomitant]
     Indication: DIABETES MELLITUS
     Dosage: UNK
  3. DIOVAN [Concomitant]
     Indication: HYPERTENSION
     Dosage: UNK
  4. ZETIA [Concomitant]
     Indication: BLOOD CHOLESTEROL INCREASED
     Dosage: UNK

REACTIONS (2)
  - DIZZINESS [None]
  - NAUSEA [None]
